FAERS Safety Report 4483540-9 (Version None)
Quarter: 2004Q4

REPORT INFORMATION
  Report Type: 
  Country: None (occurrence: None)
  Receive Date: 20041019
  Receipt Date: 20041019
  Transmission Date: 20050328
  Serious: Yes (Hospitalization)
  Sender: FDA-Public Use
  Company Number: None

PATIENT
  Sex: Male
  Weight: 54.4316 kg

DRUGS (2)
  1. AMNESTEEM [Suspect]
     Indication: ACNE CYSTIC
     Dosage: 20MG  BID  ORAL
     Route: 048
     Dates: start: 20040524, end: 20041013
  2. IBUPROFEN [Concomitant]

REACTIONS (1)
  - OVERDOSE [None]
